FAERS Safety Report 18964083 (Version 1)
Quarter: 2021Q1

REPORT INFORMATION
  Report Type: Spontaneous
  Country: US (occurrence: US)
  Receive Date: 20210303
  Receipt Date: 20210303
  Transmission Date: 20210420
  Serious: No
  Sender: FDA-Public Use
  Company Number: US-AMNEAL PHARMACEUTICALS-2020-AMRX-01330

PATIENT
  Sex: Male
  Weight: 66 kg

DRUGS (1)
  1. RYTARY [Suspect]
     Active Substance: CARBIDOPA\LEVODOPA
     Indication: PRODUCT USED FOR UNKNOWN INDICATION
     Dosage: 1 CAPSULES, QID
     Route: 048
     Dates: start: 2019

REACTIONS (3)
  - Decreased appetite [Unknown]
  - Therapy cessation [Unknown]
  - Weight decreased [Not Recovered/Not Resolved]
